FAERS Safety Report 9319504 (Version 3)
Quarter: 2016Q4

REPORT INFORMATION
  Report Type: Spontaneous
  Country: US (occurrence: US)
  Receive Date: 20130530
  Receipt Date: 20161228
  Transmission Date: 20170207
  Serious: Yes (Other)
  Sender: FDA-Public Use
  Company Number: US-GLAXOSMITHKLINE-A0993148A

PATIENT
  Sex: Female

DRUGS (7)
  1. FLOLAN [Suspect]
     Active Substance: EPOPROSTENOL SODIUM
     Dosage: UNK
     Dates: start: 20101105
  2. FLOLAN [Suspect]
     Active Substance: EPOPROSTENOL SODIUM
     Dosage: 20 DF, CO
     Route: 042
  3. LETAIRIS [Concomitant]
     Active Substance: AMBRISENTAN
  4. FLOLAN [Suspect]
     Active Substance: EPOPROSTENOL SODIUM
     Dosage: UNK
     Dates: start: 20101105
  5. FLOLAN [Suspect]
     Active Substance: EPOPROSTENOL SODIUM
     Indication: PULMONARY ARTERIAL HYPERTENSION
     Dosage: DOSE: 27.7 NG/KG/MIN, CONCENTRATION 45,000 NG/ML, PUMP RATE UNKNOWN, VIAL STRENGTH 1.5 MG
     Route: 065
     Dates: start: 20101105
  6. WARFARIN [Concomitant]
     Active Substance: WARFARIN
  7. ADCIRCA [Concomitant]
     Active Substance: TADALAFIL

REACTIONS (6)
  - Urticaria [Unknown]
  - Pruritus [Unknown]
  - Haematochezia [Unknown]
  - Catheter site inflammation [Unknown]
  - Catheter site pain [Unknown]
  - Gastric ulcer haemorrhage [Unknown]
